FAERS Safety Report 9112747 (Version 1)
Quarter: 2013Q1

REPORT INFORMATION
  Report Type: Spontaneous
  Country: JP (occurrence: JP)
  Receive Date: 20130211
  Receipt Date: 20130211
  Transmission Date: 20140127
  Serious: Yes (Other)
  Sender: FDA-Public Use
  Company Number: JP-TEVA-366539USA

PATIENT
  Age: 83 Year
  Sex: Male

DRUGS (10)
  1. TREANDA [Suspect]
     Indication: B-CELL LYMPHOMA
     Route: 042
     Dates: start: 20111004, end: 20111005
  2. TREANDA [Suspect]
     Route: 042
     Dates: start: 20111122, end: 20111124
  3. TREANDA [Suspect]
     Route: 042
     Dates: start: 20120214, end: 20120215
  4. TREANDA [Suspect]
     Route: 042
     Dates: start: 20120412, end: 20120413
  5. TREANDA [Suspect]
     Route: 042
     Dates: start: 20120621, end: 20120622
  6. RITUXIMAB [Suspect]
     Indication: B-CELL LYMPHOMA
     Dosage: UNKNOWN/D
     Route: 042
     Dates: start: 20111003
  7. RITUXIMAB [Suspect]
     Route: 042
     Dates: start: 20111121
  8. RITUXIMAB [Suspect]
     Route: 042
     Dates: start: 20120213
  9. RITUXIMAB [Suspect]
     Route: 042
     Dates: start: 20120411
  10. RITUXIMAB [Suspect]
     Route: 042
     Dates: start: 20120620

REACTIONS (2)
  - Bone marrow failure [Unknown]
  - Cytomegalovirus infection [Recovered/Resolved]
